FAERS Safety Report 23283626 (Version 1)
Quarter: 2023Q4

REPORT INFORMATION
  Report Type: Other
  Country: CA (occurrence: CA)
  Receive Date: 20231211
  Receipt Date: 20231211
  Transmission Date: 20240110
  Serious: Yes (Other)
  Sender: FDA-Public Use
  Company Number: CA-GE HEALTHCARE-2023CSU011408

PATIENT
  Age: 82 Year
  Sex: Male

DRUGS (2)
  1. OMNIPAQUE [Suspect]
     Active Substance: IOHEXOL
     Indication: Imaging procedure
     Dosage: UNK, SINGLE
     Route: 040
  2. OMNIPAQUE [Suspect]
     Active Substance: IOHEXOL
     Indication: Product used for unknown indication

REACTIONS (6)
  - Throat irritation [Unknown]
  - Sneezing [Unknown]
  - Anaphylactic reaction [Unknown]
  - Angioedema [Unknown]
  - Pruritus [Unknown]
  - Swelling [Unknown]
